FAERS Safety Report 7126277-X (Version None)
Quarter: 2010Q4

REPORT INFORMATION
  Report Type: 
  Country: None (occurrence: None)
  Receive Date: 20101129
  Receipt Date: 20101117
  Transmission Date: 20110411
  Serious: Yes (Other)
  Sender: FDA-Public Use
  Company Number: JP-JNJFOC-20101105708

PATIENT
  Age: 83 Year
  Sex: Male

DRUGS (4)
  1. LEVOFLOXACIN [Suspect]
     Indication: CHRONIC OBSTRUCTIVE PULMONARY DISEASE
     Route: 065
  2. SYMMETREL [Concomitant]
     Indication: ILL-DEFINED DISORDER
     Route: 065
  3. CYANOCOBALAMIN [Concomitant]
     Indication: ILL-DEFINED DISORDER
     Route: 065
  4. CEPHADOL [Concomitant]
     Indication: ILL-DEFINED DISORDER
     Route: 065

REACTIONS (1)
  - DELIRIUM [None]
